FAERS Safety Report 6291986-1 (Version None)
Quarter: 2009Q3

REPORT INFORMATION
  Report Type: 
  Country: None (occurrence: None)
  Receive Date: 20090729
  Receipt Date: 20090717
  Transmission Date: 20100115
  Serious: Yes (Other)
  Sender: FDA-Public Use
  Company Number: 2009AL002372

PATIENT
  Age: 86 Year
  Sex: Female

DRUGS (22)
  1. DIGOXIN [Suspect]
     Dosage: 0.125MG, DAILY; PO
     Route: 048
  2. QUINAPRIL [Concomitant]
  3. LIPITOR [Concomitant]
  4. SPIRONOLACTONE [Concomitant]
  5. SIMVASTATIN [Concomitant]
  6. ASPIRIN [Concomitant]
  7. METOPROLOL [Concomitant]
  8. FOLIC ACID [Concomitant]
  9. PANTOPRAZOLE SODIUM [Concomitant]
  10. ACCUPRIL [Concomitant]
  11. ZOCOR [Concomitant]
  12. PROTONIX [Concomitant]
  13. ROCEPHIN [Concomitant]
  14. TOPROL-XL [Concomitant]
  15. LYOFOAM [Concomitant]
  16. ZOFRAN [Concomitant]
  17. TYLENOL (CAPLET) [Concomitant]
  18. CO-GESIC [Concomitant]
  19. LASIX [Concomitant]
  20. ALDACTONE [Concomitant]
  21. ZOCOR [Concomitant]
  22. ACCUPRIL [Concomitant]

REACTIONS (11)
  - CARDIAC FAILURE CONGESTIVE [None]
  - CARDIOACTIVE DRUG LEVEL INCREASED [None]
  - DYSPNOEA [None]
  - ECONOMIC PROBLEM [None]
  - FACE INJURY [None]
  - MULTIPLE INJURIES [None]
  - OEDEMA PERIPHERAL [None]
  - RENAL FAILURE [None]
  - SURGERY [None]
  - THERAPEUTIC AGENT TOXICITY [None]
  - VENTRICULAR TACHYCARDIA [None]
